FAERS Safety Report 4267600-3 (Version None)
Quarter: 2004Q1

REPORT INFORMATION
  Report Type: 
  Country: None (occurrence: None)
  Receive Date: 20040109
  Receipt Date: 20030930
  Transmission Date: 20041129
  Serious: No
  Sender: FDA-Public Use
  Company Number: US-GLAXOSMITHKLINE-A0428128A

PATIENT

DRUGS (1)
  1. WELLBUTRIN [Suspect]
     Indication: ILL-DEFINED DISORDER
     Route: 048

REACTIONS (5)
  - HEADACHE [None]
  - NECK MASS [None]
  - PHARYNGOLARYNGEAL PAIN [None]
  - SUBCUTANEOUS NODULE [None]
  - THYROID NEOPLASM [None]
